FAERS Safety Report 17724157 (Version 3)
Quarter: 2020Q2

REPORT INFORMATION
  Report Type: Spontaneous
  Country: US (occurrence: US)
  Receive Date: 20200429
  Receipt Date: 20200505
  Transmission Date: 20200714
  Serious: Yes (Death, Other)
  Sender: FDA-Public Use
  Company Number: US-CELGENEUS-USA-20200408766

PATIENT
  Age: 74 Year
  Sex: Male

DRUGS (12)
  1. KEFLEX [Concomitant]
     Active Substance: CEPHALEXIN
     Indication: INFECTION
     Dosage: 1000 MILLIGRAM
     Route: 048
     Dates: start: 20200306, end: 20200313
  2. OCTREOTIDE. [Concomitant]
     Active Substance: OCTREOTIDE
     Indication: GASTROINTESTINAL HAEMORRHAGE
     Dosage: 300 MILLIGRAM
     Route: 058
     Dates: start: 201602, end: 20200313
  3. QUINIDINE [Concomitant]
     Active Substance: QUINIDINE
     Indication: VENOUS THROMBOSIS
     Dosage: 972 MILLIGRAM
     Route: 048
     Dates: start: 20190925, end: 20200313
  4. ZOSYN [Concomitant]
     Active Substance: PIPERACILLIN SODIUM\TAZOBACTAM SODIUM
     Indication: INFECTION
     Route: 041
     Dates: start: 20200306, end: 20200313
  5. AMIODARONE [Concomitant]
     Active Substance: AMIODARONE
     Indication: VENOUS THROMBOSIS
     Dosage: 400 MILLIGRAM
     Route: 048
     Dates: start: 20191018, end: 20200313
  6. THALOMID [Suspect]
     Active Substance: THALIDOMIDE
     Indication: OFF LABEL USE
  7. BACTRIM [Concomitant]
     Active Substance: SULFAMETHOXAZOLE\TRIMETHOPRIM
     Indication: INFECTION
     Dosage: 400-80 MG
     Route: 048
     Dates: start: 20191224, end: 20200313
  8. INSULIN [Concomitant]
     Active Substance: INSULIN NOS
     Indication: TYPE 2 DIABETES MELLITUS
     Route: 058
     Dates: start: 2016, end: 20200313
  9. OCTREOTIDE. [Concomitant]
     Active Substance: OCTREOTIDE
     Indication: ARTERIOVENOUS MALFORMATION
  10. THALOMID [Suspect]
     Active Substance: THALIDOMIDE
     Indication: ANAEMIA
     Dosage: 100 MILLIGRAM
     Route: 048
     Dates: start: 20170629, end: 20200313
  11. OCTREOTIDE. [Concomitant]
     Active Substance: OCTREOTIDE
     Indication: ANAEMIA
  12. MIDODRINE [Concomitant]
     Active Substance: MIDODRINE
     Indication: HYPOTENSION
     Dosage: 45 MILLIGRAM
     Route: 065
     Dates: start: 20200306, end: 20200313

REACTIONS (2)
  - Respiratory failure [Fatal]
  - Chronic kidney disease [Unknown]

NARRATIVE: CASE EVENT DATE: 20190320
